FAERS Safety Report 17453686 (Version 1)
Quarter: 2020Q1

REPORT INFORMATION
  Report Type: Spontaneous
  Country: None (occurrence: US)
  Receive Date: 20200224
  Receipt Date: 20200224
  Transmission Date: 20200409
  Serious: No
  Sender: FDA-Public Use
  Company Number: US-VYERA PHARMACEUTICALS, LLC-2019VYE00026

PATIENT
  Age: 38 Year
  Sex: Female

DRUGS (3)
  1. DARAPRIM [Suspect]
     Active Substance: PYRIMETHAMINE
     Indication: HAEMOGLOBINOPATHY
     Dosage: 75 MG, 1X/DAY
     Route: 048
     Dates: start: 20190406
  2. UNSPECIFIED ^MULTIPLE MEDICATIONS^ [Concomitant]
  3. BIKTARVY [Concomitant]
     Active Substance: BICTEGRAVIR SODIUM\EMTRICITABINE\TENOFOVIR ALAFENAMIDE FUMARATE

REACTIONS (5)
  - Dyspepsia [Unknown]
  - Chest pain [Unknown]
  - Back pain [Unknown]
  - Off label use [Not Recovered/Not Resolved]
  - Odynophagia [Unknown]

NARRATIVE: CASE EVENT DATE: 20190406
